FAERS Safety Report 11659780 (Version 1)
Quarter: 2015Q4

REPORT INFORMATION
  Report Type: Spontaneous
  Country: FR (occurrence: FR)
  Receive Date: 20151026
  Receipt Date: 20151026
  Transmission Date: 20160304
  Serious: Yes (Hospitalization, Other)
  Sender: FDA-Public Use
  Company Number: FR-ASTRAZENECA-2015SF02951

PATIENT
  Age: 47 Year
  Sex: Female

DRUGS (5)
  1. XEROQUEL [Suspect]
     Active Substance: QUETIAPINE FUMARATE
     Indication: DEPRESSION
     Route: 048
     Dates: start: 20151016, end: 20151020
  2. XEROQUEL [Suspect]
     Active Substance: QUETIAPINE FUMARATE
     Indication: DEPRESSION
     Route: 048
     Dates: start: 20151015, end: 20151015
  3. THERALENE [Concomitant]
     Active Substance: TRIMEPRAZINE
  4. XEROQUEL [Suspect]
     Active Substance: QUETIAPINE FUMARATE
     Indication: DEPRESSION
     Route: 048
     Dates: start: 20151014, end: 20151014
  5. XEROQUEL [Suspect]
     Active Substance: QUETIAPINE FUMARATE
     Indication: DEPRESSION
     Route: 048
     Dates: start: 20151013, end: 20151013

REACTIONS (2)
  - Constipation [Recovering/Resolving]
  - Subileus [Recovering/Resolving]

NARRATIVE: CASE EVENT DATE: 20151015
